FAERS Safety Report 4734872-8 (Version None)
Quarter: 2005Q3

REPORT INFORMATION
  Report Type: 
  Country: None (occurrence: None)
  Receive Date: 20050804
  Receipt Date: 20050727
  Transmission Date: 20060218
  Serious: Yes (Other)
  Sender: FDA-Public Use
  Company Number: PHBS2005AU11065

PATIENT
  Age: 47 Year
  Sex: Male

DRUGS (5)
  1. NEORAL [Suspect]
     Indication: RENAL TRANSPLANT
     Dosage: 350 MG, BID
     Route: 048
  2. NEORAL [Suspect]
     Dosage: 250 MG, BID
     Route: 048
  3. PREDNISONE [Concomitant]
     Dosage: 30 MG/D
  4. CELLCEPT [Concomitant]
     Dosage: 1 G, BID
  5. FELODIPINE [Suspect]
     Indication: HYPERTENSION

REACTIONS (8)
  - ABDOMINAL OPERATION [None]
  - BLOOD CREATININE INCREASED [None]
  - DRUG INTERACTION [None]
  - DRUG LEVEL CHANGED [None]
  - GRAFT COMPLICATION [None]
  - HYPERTENSION [None]
  - LYMPHOCELE [None]
  - SURGERY [None]
